FAERS Safety Report 21995127 (Version 1)
Quarter: 2023Q1

REPORT INFORMATION
  Report Type: Spontaneous
  Country: US (occurrence: None)
  Receive Date: 20230214
  Receipt Date: 20230214
  Transmission Date: 20230417
  Serious: Yes (Disabling)
  Sender: FDA-Public Use
  Company Number: None

PATIENT
  Age: 60 Year
  Sex: Male
  Weight: 90 kg

DRUGS (2)
  1. CRESTOR [Suspect]
     Active Substance: ROSUVASTATIN CALCIUM
     Indication: Blood cholesterol
     Dosage: OTHER QUANTITY : 1 TABLET(S);?
     Route: 048
     Dates: start: 20100401, end: 20220914
  2. SIMVASTATIN [Suspect]
     Active Substance: SIMVASTATIN

REACTIONS (10)
  - Arthralgia [None]
  - Gait disturbance [None]
  - Spinal stenosis [None]
  - Intervertebral disc protrusion [None]
  - Musculoskeletal discomfort [None]
  - Limb discomfort [None]
  - Myopathy [None]
  - Impaired quality of life [None]
  - Anger [None]
  - Impaired work ability [None]

NARRATIVE: CASE EVENT DATE: 20180426
